FAERS Safety Report 19681308 (Version 1)
Quarter: 2021Q3

REPORT INFORMATION
  Report Type: Spontaneous
  Country: US (occurrence: US)
  Receive Date: 20210810
  Receipt Date: 20210810
  Transmission Date: 20211014
  Serious: No
  Sender: FDA-Public Use
  Company Number: US-IGSA-BIG0011858

PATIENT
  Age: 62 Year
  Sex: Female
  Weight: 89 kg

DRUGS (3)
  1. GAMUNEX?C [Suspect]
     Active Substance: HUMAN IMMUNOGLOBULIN G
     Indication: SELECTIVE IGG SUBCLASS DEFICIENCY
     Dosage: 70 GRAM, Q.4WK.
     Route: 042
     Dates: start: 20201014, end: 20201014
  2. TOPIRAMATE. [Concomitant]
     Active Substance: TOPIRAMATE
  3. CBD OIL [Concomitant]
     Active Substance: CANNABIDIOL\HERBALS

REACTIONS (7)
  - Fatigue [Recovered/Resolved]
  - Migraine [Recovered/Resolved]
  - Feeling abnormal [Recovered/Resolved]
  - Vomiting [Recovered/Resolved]
  - Arthralgia [Recovered/Resolved]
  - Productive cough [Recovered/Resolved]
  - Palpitations [Recovered/Resolved]

NARRATIVE: CASE EVENT DATE: 20201014
